FAERS Safety Report 22100983 (Version 1)
Quarter: 2023Q1

REPORT INFORMATION
  Report Type: Spontaneous
  Country: NL (occurrence: NL)
  Receive Date: 20230316
  Receipt Date: 20230316
  Transmission Date: 20230418
  Serious: Yes (Other)
  Sender: FDA-Public Use
  Company Number: None

PATIENT
  Sex: Male
  Weight: 68 kg

DRUGS (4)
  1. VINCRISTINE [Suspect]
     Active Substance: VINCRISTINE
     Indication: Lymphoma
     Dosage: 2 MG, BRAND NAME NOT SPECIFIED
     Route: 065
     Dates: start: 20230222
  2. DOXORUBICIN [Concomitant]
     Active Substance: DOXORUBICIN
     Indication: Lymphoma
     Dosage: BRAND NAME NOT SPECIFIED
     Route: 065
     Dates: start: 20230222
  3. PREDNISONE [Concomitant]
     Active Substance: PREDNISONE
     Indication: Lymphoma
     Dosage: BRAND NAME NOT SPECIFIED
     Dates: start: 20230222
  4. CYCLOPHOSPHAMIDE [Concomitant]
     Active Substance: CYCLOPHOSPHAMIDE
     Indication: Lymphoma
     Dosage: BRAND NAME NOT SPECIFIED
     Route: 065
     Dates: start: 20230222

REACTIONS (1)
  - Neuropathy peripheral [Not Recovered/Not Resolved]
